FAERS Safety Report 5083506-4 (Version None)
Quarter: 2006Q3

REPORT INFORMATION
  Report Type: 
  Country: None (occurrence: None)
  Receive Date: 20060720
  Receipt Date: 20050718
  Transmission Date: 20061208
  Serious: Yes (Hospitalization, Other)
  Sender: FDA-Public Use
  Company Number: 2005040214

PATIENT
  Age: 83 Year
  Sex: Female
  Weight: 78.9259 kg

DRUGS (7)
  1. CELEBREX [Suspect]
     Indication: OSTEOARTHRITIS
     Dosage: 200 MG (200 MG, 1 IN 1 D), ORAL
     Route: 048
     Dates: end: 20050101
  2. LOTREL [Concomitant]
  3. ESTRADIOL INJ [Concomitant]
  4. ROXICET [Concomitant]
  5. HYDROCHLOROTHIAZIDE [Concomitant]
  6. NASONEX [Concomitant]
  7. ASPIRIN [Concomitant]

REACTIONS (6)
  - ANXIETY [None]
  - ARRHYTHMIA [None]
  - CHEST DISCOMFORT [None]
  - CHEST PAIN [None]
  - PALPITATIONS [None]
  - UNEVALUABLE EVENT [None]
